FAERS Safety Report 25630380 (Version 1)
Quarter: 2025Q3

REPORT INFORMATION
  Report Type: Report from Study
  Country: US (occurrence: US)
  Receive Date: 20250801
  Receipt Date: 20250801
  Transmission Date: 20251020
  Serious: Yes (Other)
  Sender: SUNOVION
  Company Number: US-SMPA-2025SPA009693

PATIENT

DRUGS (1)
  1. ORGOVYX [Suspect]
     Active Substance: RELUGOLIX
     Indication: Prostate cancer
     Route: 048
     Dates: start: 20240509

REACTIONS (9)
  - Chronic kidney disease [Unknown]
  - Cataract operation [Unknown]
  - Blood pressure decreased [Recovering/Resolving]
  - Nocturia [Unknown]
  - Full blood count decreased [Unknown]
  - Poor quality sleep [Unknown]
  - Decreased appetite [Recovering/Resolving]
  - Hot flush [Unknown]
  - Fatigue [Unknown]
